FAERS Safety Report 12714563 (Version 12)
Quarter: 2017Q1

REPORT INFORMATION
  Report Type: Spontaneous
  Country: US (occurrence: US)
  Receive Date: 20160905
  Receipt Date: 20170118
  Transmission Date: 20170428
  Serious: Yes (Hospitalization)
  Sender: FDA-Public Use
  Company Number: US-PFIZER INC-2016378009

PATIENT
  Age: 82 Year
  Sex: Male
  Weight: 76 kg

DRUGS (30)
  1. DECADRON [Concomitant]
     Active Substance: DEXAMETHASONE
     Dosage: 4 MG, 2X/DAY
  2. PRILOSEC [Concomitant]
     Active Substance: OMEPRAZOLE MAGNESIUM
     Dosage: 20 MG, DAILY (AT 8 AM)
     Route: 048
  3. SEROQUEL [Concomitant]
     Active Substance: QUETIAPINE FUMARATE
     Dosage: (0.5 TABLETS ), 1X/DAY (BEDTIME AS NEEDED)
     Route: 048
  4. HUMULIN N [Concomitant]
     Active Substance: INSULIN HUMAN
     Dosage: 3 ML, 2X/DAY (100 UNIT/ML )
     Route: 058
  5. DEXAMETHASONE. [Concomitant]
     Active Substance: DEXAMETHASONE
     Dosage: UNK
  6. LOTRIMIN [Concomitant]
     Active Substance: CLOTRIMAZOLE
     Indication: RASH
     Dosage: UNK UNK, AS NEEDED, (TWICE A DAY)
  7. SEPTRA [Concomitant]
     Active Substance: SULFAMETHOXAZOLE\TRIMETHOPRIM
     Indication: PROPHYLAXIS
     Dosage: 1 DF, 2X/DAY , [SULFAMETHOXAZOLE 400 MG] / [TRIMETHOPRIM 800 MG], (ON MON, WED, FRI)
  8. DECADRON [Concomitant]
     Active Substance: DEXAMETHASONE
     Dosage: 1 MG, 1X/DAY, (IN EVENING)
  9. HUMULIN N [Concomitant]
     Active Substance: INSULIN HUMAN
     Dosage: 12 IU, TWO TIMES DAILY (100 UNIT/ML)
     Route: 058
  10. HUMULIN N [Concomitant]
     Active Substance: INSULIN HUMAN
     Dosage: 27 IU, 2X/DAY
     Route: 058
  11. SUTENT [Suspect]
     Active Substance: SUNITINIB MALATE
     Dosage: 25 MG, CYCLIC, (DAILY FOR 28 DAYS ON / 14 DAYS OFF )
  12. DIFLUCAN [Concomitant]
     Active Substance: FLUCONAZOLE
     Indication: CANDIDA INFECTION
     Dosage: 100 MG, DAILY
  13. SUTENT [Suspect]
     Active Substance: SUNITINIB MALATE
     Dosage: 25 MG, DAILY
     Route: 048
     Dates: start: 20161206
  14. COZAAR [Concomitant]
     Active Substance: LOSARTAN POTASSIUM
     Dosage: 25 MG, DAILY (1/2 TABLET IN EVENING)
     Route: 048
  15. SEROQUEL [Concomitant]
     Active Substance: QUETIAPINE FUMARATE
     Indication: INSOMNIA
     Dosage: 12.5 MG, AS NEEDED (0.5 TABLET AT BEDTIME)
     Route: 048
  16. NOVOLIN N [Concomitant]
     Active Substance: INSULIN HUMAN
     Dosage: 27 IU, 2X/DAY
     Route: 058
  17. SUTENT [Suspect]
     Active Substance: SUNITINIB MALATE
     Indication: METASTATIC RENAL CELL CARCINOMA
     Dosage: 50 MG, DAILY
     Route: 048
  18. SUTENT [Suspect]
     Active Substance: SUNITINIB MALATE
     Dosage: 50 MG, CYCLIC (28 DAYS ON/14 DAYS OFF)
     Dates: start: 20160822, end: 20160911
  19. DECADRON [Concomitant]
     Active Substance: DEXAMETHASONE
     Dosage: 4 MG, (EVERY 6 HOURS FOR 30 DAYS)
     Route: 048
  20. NORCO [Concomitant]
     Active Substance: ACETAMINOPHEN\HYDROCODONE BITARTRATE
     Indication: PAIN
     Dosage: 1 DF, AS NEEDED (EVERY 4 HOURS) (HYDROCODONE BITARTRATE-5 MG/PARACETAMOL- 325 MG)
     Route: 048
  21. LAC-HYDRIN [Concomitant]
     Active Substance: AMMONIUM LACTATE
     Dosage: UNK UNK, 2X/DAY
     Route: 061
  22. SUTENT [Suspect]
     Active Substance: SUNITINIB MALATE
     Dosage: 25 MG, CYCLIC(DAILY FOR 28 DAYS ON / 14 DAYS OFF )
     Dates: start: 20161114, end: 20161211
  23. SUTENT [Suspect]
     Active Substance: SUNITINIB MALATE
     Dosage: 25 MG, CYCLIC [28 DAYS ON/14 DAYS OFF]
     Dates: start: 20161114, end: 20161228
  24. KEFLEX [Concomitant]
     Active Substance: CEPHALEXIN
     Dosage: 500 MG, 2 TIMES DAILY (FOR 7 DAYS)
     Route: 048
  25. DECADRON [Concomitant]
     Active Substance: DEXAMETHASONE
     Dosage: (TAKE 1MG QAM AND 0.5MG QPM ), 2X/DAY
  26. LASIX [Concomitant]
     Active Substance: FUROSEMIDE
     Indication: FLUID RETENTION
     Dosage: 40 MG, DAILY
     Route: 048
  27. BACTRIM [Concomitant]
     Active Substance: SULFAMETHOXAZOLE\TRIMETHOPRIM
     Indication: PROPHYLAXIS
     Dosage: 1 DF, 2X/DAY, [SULFAMETHOXAZOLE 400 MG] / [TRIMETHOPRIM 800 MG], (ON MON, WED, FRI)
  28. DECADRON [Concomitant]
     Active Substance: DEXAMETHASONE
     Dosage: 0.5 MG, 2X/DAY
  29. IBUPROFEN. [Concomitant]
     Active Substance: IBUPROFEN
     Dosage: 3 DF, AS NEEDED (DAILY)
     Route: 048
  30. GLUCOSAMINE CHONDROITIN [Concomitant]
     Active Substance: CHONDROITIN SULFATE (BOVINE)\GLUCOSAMINE HYDROCHLORIDE
     Dosage: UNK

REACTIONS (14)
  - Neoplasm progression [Unknown]
  - Oral pain [Unknown]
  - Peripheral swelling [Unknown]
  - Joint swelling [Not Recovered/Not Resolved]
  - Pyrexia [Recovered/Resolved]
  - Fluid retention [Unknown]
  - Pain in jaw [Unknown]
  - Pain in extremity [Recovered/Resolved]
  - Feeling abnormal [Unknown]
  - Fatigue [Unknown]
  - Candida infection [Recovered/Resolved]
  - Dehydration [Recovering/Resolving]
  - Blood calcium increased [Unknown]
  - Asthenia [Recovering/Resolving]
